APPROVED DRUG PRODUCT: NITROL
Active Ingredient: NITROGLYCERIN
Strength: 0.8MG/ML
Dosage Form/Route: INJECTABLE;INJECTION
Application: N018774 | Product #001
Applicant: RORER PHARMACEUTICAL CORP SUB RORER GROUP
Approved: Jan 19, 1983 | RLD: No | RS: No | Type: DISCN